FAERS Safety Report 21361672 (Version 1)
Quarter: 2022Q3

REPORT INFORMATION
  Report Type: Spontaneous
  Country: SE (occurrence: SE)
  Receive Date: 20220921
  Receipt Date: 20220921
  Transmission Date: 20221027
  Serious: Yes (Hospitalization, Other)
  Sender: FDA-Public Use
  Company Number: SE-ORGANON-O2208SWE002387

PATIENT
  Age: 80 Year
  Sex: Female
  Weight: 59.2 kg

DRUGS (5)
  1. REMINYL [Suspect]
     Active Substance: GALANTAMINE
     Indication: Cognitive disorder
     Dosage: 16 MILLIGRAM, QD
     Route: 048
     Dates: end: 20220812
  2. LECANEMAB [Suspect]
     Active Substance: LECANEMAB
     Indication: Dementia Alzheimer^s type
     Dosage: 10 MILLIGRAM PER KILOGRAM (MG/KG), EVERY 2 WEEKS (ROUTE: INTRAVENOUS (NOT OTHERWISE SPECIFIED)) (BLI
     Route: 042
     Dates: start: 20210212, end: 20220728
  3. ENALAPRIL MALEATE\HYDROCHLOROTHIAZIDE [Suspect]
     Active Substance: ENALAPRIL MALEATE\HYDROCHLOROTHIAZIDE
     Indication: Hypertension
     Dosage: 20 MG/12 MG, TWICE DAILY (12 HR)
     Route: 048
     Dates: end: 20220812
  4. ASPIRIN [Concomitant]
     Active Substance: ASPIRIN
     Dosage: UNK
     Route: 065
  5. CITALOPRAM [Concomitant]
     Active Substance: CITALOPRAM HYDROBROMIDE

REACTIONS (2)
  - Hypokalaemia [Recovered/Resolved]
  - Electrocardiogram abnormal [Recovered/Resolved]

NARRATIVE: CASE EVENT DATE: 20220812
